FAERS Safety Report 24086785 (Version 5)
Quarter: 2024Q3

REPORT INFORMATION
  Report Type: Report from Study
  Country: FR (occurrence: FR)
  Receive Date: 20240713
  Receipt Date: 20240928
  Transmission Date: 20241017
  Serious: Yes (Hospitalization)
  Sender: ABBVIE
  Company Number: FR-ABBVIE-5834963

PATIENT
  Age: 64 Year
  Sex: Male

DRUGS (2)
  1. CARBIDOPA\LEVODOPA [Suspect]
     Active Substance: CARBIDOPA\LEVODOPA
     Indication: Parkinson^s disease
     Route: 050
     Dates: start: 20210830
  2. CARBIDOPA\LEVODOPA [Suspect]
     Active Substance: CARBIDOPA\LEVODOPA

REACTIONS (13)
  - Epilepsy [Recovered/Resolved]
  - Discomfort [Unknown]
  - Cognitive disorder [Not Recovered/Not Resolved]
  - Partial seizures [Recovered/Resolved]
  - Malaise [Not Recovered/Not Resolved]
  - Persecutory delusion [Unknown]
  - Hallucination [Not Recovered/Not Resolved]
  - Hyperthermia [Unknown]
  - Epilepsy [Not Recovered/Not Resolved]
  - Petechiae [Unknown]
  - Cerebral amyloid angiopathy [Not Recovered/Not Resolved]
  - Disorientation [Unknown]
  - Device breakage [Unknown]

NARRATIVE: CASE EVENT DATE: 20240101
